FAERS Safety Report 7379123-3 (Version None)
Quarter: 2011Q1

REPORT INFORMATION
  Report Type: 
  Country: None (occurrence: None)
  Receive Date: 20110328
  Receipt Date: 20110302
  Transmission Date: 20110831
  Serious: No
  Sender: FDA-Public Use
  Company Number: US-B.I. PHARMACEUTICALS,INC./RIDGEFIELD-2011-BP-01355BP

PATIENT
  Sex: Male

DRUGS (12)
  1. METOPROLOL SUCCINATE [Concomitant]
     Indication: CARDIAC DISORDER
     Dosage: 50 MG
     Route: 048
     Dates: start: 20020101
  2. ONCE A DAY VITAMIN [Concomitant]
     Indication: SUPPLEMENTATION THERAPY
     Route: 048
  3. CINNAMON [Concomitant]
     Indication: DIABETES MELLITUS
     Dosage: 5000 MG
     Route: 048
     Dates: start: 20050101
  4. LOVAZA [Concomitant]
     Indication: SUPPLEMENTATION THERAPY
     Dosage: 3000 MG
     Route: 048
  5. ALEVE [Concomitant]
     Indication: ARTHRITIS
     Route: 048
     Dates: start: 20101201
  6. PRADAXA [Suspect]
     Indication: ATRIAL FIBRILLATION
     Dosage: 300 MG
     Route: 048
     Dates: start: 20110114
  7. JANUVIA [Concomitant]
     Indication: DIABETES MELLITUS
     Dosage: 25 MG
     Route: 048
     Dates: start: 20101223
  8. ZETIA [Concomitant]
     Indication: BLOOD CHOLESTEROL INCREASED
     Dosage: 10 MG
     Route: 048
     Dates: start: 20100101
  9. TYLENOL PM [Concomitant]
     Indication: SLEEP DISORDER
  10. AMLODIPINE [Concomitant]
     Indication: CARDIAC DISORDER
     Dosage: 5 G
     Route: 048
  11. PORAVASTATIN [Concomitant]
     Indication: BLOOD CHOLESTEROL INCREASED
     Dosage: 80 MG
     Route: 048
     Dates: start: 20100101
  12. ACTOS [Concomitant]
     Indication: DIABETES MELLITUS
     Dosage: 30 MG
     Route: 048
     Dates: start: 20100101

REACTIONS (4)
  - ABDOMINAL PAIN UPPER [None]
  - NAUSEA [None]
  - FOOD POISONING [None]
  - GASTROENTERITIS VIRAL [None]
